FAERS Safety Report 7190621-8 (Version None)
Quarter: 2010Q4

REPORT INFORMATION
  Report Type: 
  Country: None (occurrence: None)
  Receive Date: 20101223
  Receipt Date: 20101210
  Transmission Date: 20110411
  Serious: Yes (Hospitalization, Disabling)
  Sender: FDA-Public Use
  Company Number: JP-SANOFI-AVENTIS-2010SA071723

PATIENT
  Age: 58 Year
  Sex: Male

DRUGS (9)
  1. ELPLAT [Suspect]
     Indication: COLON CANCER
     Route: 041
     Dates: start: 20080718, end: 20080718
  2. ELPLAT [Suspect]
     Route: 041
     Dates: start: 20090508, end: 20090508
  3. CALCIUM LEVOFOLINATE [Suspect]
     Indication: COLON CANCER
     Route: 041
     Dates: start: 20080718, end: 20080718
  4. CALCIUM LEVOFOLINATE [Suspect]
     Route: 041
     Dates: start: 20090508, end: 20090508
  5. FLUOROURACIL [Suspect]
     Indication: COLON CANCER
     Route: 040
     Dates: start: 20080718, end: 20080718
  6. FLUOROURACIL [Suspect]
     Route: 041
     Dates: start: 20080718, end: 20080718
  7. FLUOROURACIL [Suspect]
     Route: 040
     Dates: start: 20090508, end: 20090508
  8. FLUOROURACIL [Suspect]
     Route: 041
     Dates: start: 20090508, end: 20090508
  9. AVASTIN [Suspect]
     Indication: COLON CANCER
     Route: 041
     Dates: start: 20080718, end: 20090508

REACTIONS (2)
  - CEREBRAL INFARCTION [None]
  - POLYMYOSITIS [None]
